FAERS Safety Report 9518630 (Version 4)
Quarter: 2014Q1

REPORT INFORMATION
  Report Type: Report from Study
  Country: BR (occurrence: BR)
  Receive Date: 20130912
  Receipt Date: 20140327
  Transmission Date: 20141002
  Serious: Yes (Other)
  Sender: FDA-Public Use
  Company Number: PHHY2013BR098875

PATIENT
  Sex: Female
  Weight: 85 kg

DRUGS (7)
  1. TRILEPTAL [Suspect]
     Indication: PETIT MAL EPILEPSY
     Dosage: 3 TABLETS (900 MG),DAILY
     Route: 048
     Dates: start: 1993
  2. TRILEPTAL [Suspect]
     Dosage: 1200 MG, DAILY
     Route: 048
     Dates: start: 2009, end: 2011
  3. TRILEPTAL [Suspect]
     Dosage: UNK UKN, TID
  4. OXCARBAZEPINA [Suspect]
     Indication: PETIT MAL EPILEPSY
     Dosage: 3 TABLETS, DAILY
     Route: 048
     Dates: start: 2011, end: 2011
  5. OLEPTAL [Suspect]
     Indication: PETIT MAL EPILEPSY
     Dosage: 3 TABLETS, DAILY
     Route: 048
     Dates: start: 2011, end: 2011
  6. TOPAMAX [Suspect]
     Indication: PETIT MAL EPILEPSY
     Dosage: 2 TABLETS, DAILY
     Route: 048
     Dates: start: 2007, end: 2008
  7. TOPAMAX [Suspect]
     Indication: WEIGHT ABNORMAL

REACTIONS (5)
  - Epilepsy [Unknown]
  - Ankle fracture [Recovering/Resolving]
  - Fall [Unknown]
  - Amnesia [Unknown]
  - Petit mal epilepsy [Not Recovered/Not Resolved]
